FAERS Safety Report 4713474-3 (Version None)
Quarter: 2005Q3

REPORT INFORMATION
  Report Type: 
  Country: None (occurrence: None)
  Receive Date: 20050712
  Receipt Date: 20050629
  Transmission Date: 20060218
  Serious: Yes (Death)
  Sender: FDA-Public Use
  Company Number: MK200506-0391-1

PATIENT
  Sex: Female

DRUGS (2)
  1. HYDROCODONE BITARTRATE + ACETAMINOPHEN [Suspect]
     Dates: end: 20031009
  2. UNKNOWN MEDICATION (S) [Suspect]
     Dates: end: 20031009

REACTIONS (1)
  - DRUG TOXICITY [None]
